FAERS Safety Report 12372723 (Version 3)
Quarter: 2016Q2

REPORT INFORMATION
  Report Type: Spontaneous
  Country: GB (occurrence: GB)
  Receive Date: 20160516
  Receipt Date: 20160627
  Transmission Date: 20160815
  Serious: Yes (Hospitalization, Other)
  Sender: FDA-Public Use
  Company Number: GB-AMGEN-GBRSP2016059846

PATIENT
  Age: 55 Year
  Sex: Male

DRUGS (17)
  1. 5-FU [Suspect]
     Active Substance: FLUOROURACIL
     Dosage: 1/1 CYCLICAL
     Route: 041
  2. ZALTRAP [Suspect]
     Active Substance: ZIV-AFLIBERCEPT
     Dosage: 316 MG, 1/1 CYCLICAL
     Route: 065
     Dates: start: 20160203, end: 20160203
  3. ZALTRAP [Suspect]
     Active Substance: ZIV-AFLIBERCEPT
     Dosage: 316 MG, 1/1 CYCLICAL
     Route: 065
     Dates: start: 20160525, end: 20160525
  4. ZALTRAP [Suspect]
     Active Substance: ZIV-AFLIBERCEPT
     Indication: PRODUCT USED FOR UNKNOWN INDICATION
     Dosage: 316 MG, 1/1 CYCLICAL
     Route: 065
     Dates: start: 20160120, end: 20160120
  5. NEULASTA [Suspect]
     Active Substance: PEGFILGRASTIM
     Indication: PRODUCT USED FOR UNKNOWN INDICATION
     Dosage: UNK
     Route: 065
  6. 5-FU [Suspect]
     Active Substance: FLUOROURACIL
     Dosage: 1/1 CYCLICAL
     Route: 040
  7. 5-FU [Suspect]
     Active Substance: FLUOROURACIL
     Dosage: 1/1 CYCLICAL
     Route: 041
  8. IRINOTECAN [Suspect]
     Active Substance: IRINOTECAN
     Indication: PRODUCT USED FOR UNKNOWN INDICATION
     Dosage: UNK, 1/1 CYCLICAL
     Route: 041
  9. LEUCOVORIN. [Suspect]
     Active Substance: LEUCOVORIN
     Indication: PRODUCT USED FOR UNKNOWN INDICATION
     Dosage: UNK, 1/1 CYCLICAL
     Route: 041
  10. ZALTRAP [Suspect]
     Active Substance: ZIV-AFLIBERCEPT
     Dosage: UNK, 1/1 CYCLICAL
     Route: 065
  11. ZALTRAP [Suspect]
     Active Substance: ZIV-AFLIBERCEPT
     Dosage: 316 MG, 1/1 CYCLICAL
     Route: 065
     Dates: start: 20160302, end: 20160302
  12. ZALTRAP [Suspect]
     Active Substance: ZIV-AFLIBERCEPT
     Dosage: 316 MG, 1/1 CYCLICAL
     Route: 065
     Dates: start: 20160511, end: 20160511
  13. ZALTRAP [Suspect]
     Active Substance: ZIV-AFLIBERCEPT
     Dosage: 316 MG, 1/1 CYCLICAL
     Route: 065
  14. ZALTRAP [Suspect]
     Active Substance: ZIV-AFLIBERCEPT
     Dosage: UNK, 1/1 CYCLICAL
     Route: 065
  15. 5-FU [Suspect]
     Active Substance: FLUOROURACIL
     Indication: PRODUCT USED FOR UNKNOWN INDICATION
     Dosage: 1/1 CYCLICAL
     Route: 040
  16. ZALTRAP [Suspect]
     Active Substance: ZIV-AFLIBERCEPT
     Dosage: 316 MG, 1/1 CYCLICAL
     Route: 065
  17. ZALTRAP [Suspect]
     Active Substance: ZIV-AFLIBERCEPT
     Dosage: 316 MG, 1/1 CYCLICAL
     Route: 065

REACTIONS (17)
  - Diarrhoea [Recovered/Resolved]
  - Abdominal pain upper [Unknown]
  - Oral herpes [Unknown]
  - Dry skin [Unknown]
  - Lethargy [Unknown]
  - Pneumonia [Unknown]
  - Oral pain [Unknown]
  - Paraesthesia mucosal [Unknown]
  - Dysgeusia [Unknown]
  - Alopecia [Unknown]
  - Dyspepsia [Unknown]
  - Neuropathy peripheral [Unknown]
  - Arthralgia [Unknown]
  - Lip dry [Unknown]
  - Fatigue [Not Recovered/Not Resolved]
  - Gingival pain [Unknown]
  - Paraesthesia oral [Unknown]
